FAERS Safety Report 22029622 (Version 1)
Quarter: 2023Q1

REPORT INFORMATION
  Report Type: Spontaneous
  Country: US (occurrence: None)
  Receive Date: 20230221
  Receipt Date: 20230221
  Transmission Date: 20230418
  Serious: Yes (Other)
  Sender: FDA-Public Use
  Company Number: None

PATIENT
  Sex: Male

DRUGS (4)
  1. STELARA [Suspect]
     Active Substance: USTEKINUMAB
     Indication: Psoriatic arthropathy
     Dosage: OTHER FREQUENCY : EVERY 12 WEEKS;?
     Route: 058
     Dates: start: 20160719
  2. TAGRISSO [Concomitant]
     Active Substance: OSIMERTINIB
  3. MIRTAZAPINE [Concomitant]
     Active Substance: MIRTAZAPINE
  4. DEXAMETHASONE [Concomitant]
     Active Substance: DEXAMETHASONE

REACTIONS (3)
  - Diplopia [None]
  - Lung neoplasm malignant [None]
  - Psoriasis [None]
